FAERS Safety Report 8324902-9 (Version None)
Quarter: 2012Q2

REPORT INFORMATION
  Report Type: 
  Country: None (occurrence: None)
  Receive Date: 20120501
  Receipt Date: 20120425
  Transmission Date: 20120825
  Serious: Yes (Other)
  Sender: FDA-Public Use
  Company Number: US-PFIZER INC-2012103275

PATIENT
  Sex: Female
  Weight: 82 kg

DRUGS (4)
  1. TEMAZEPAM [Concomitant]
     Dosage: UNK
  2. NORCO [Concomitant]
     Dosage: UNK
  3. LYRICA [Suspect]
     Indication: SCIATIC NERVE INJURY
     Dosage: 100 MG, 3X/DAY
     Route: 048
     Dates: start: 20090101
  4. PREDNISONE [Concomitant]
     Dosage: UNK

REACTIONS (4)
  - PAIN IN EXTREMITY [None]
  - WEIGHT INCREASED [None]
  - GAIT DISTURBANCE [None]
  - PAIN [None]
